FAERS Safety Report 20463195 (Version 1)
Quarter: 2022Q1

REPORT INFORMATION
  Report Type: Spontaneous
  Country: NL (occurrence: NL)
  Receive Date: 20220211
  Receipt Date: 20220211
  Transmission Date: 20220424
  Serious: Yes (Other)
  Sender: FDA-Public Use
  Company Number: None

PATIENT
  Sex: Male
  Weight: 95 kg

DRUGS (1)
  1. CIPROFLOXACIN [Suspect]
     Active Substance: CIPROFLOXACIN
     Indication: Urinary tract infection
     Dosage: 2 DOSAGE FORMS DAILY; 2X A DAY,CIPROFLOXACINE TABLET 500MG / BRAND NAME NOT SPECIFIED
     Dates: start: 20220103, end: 20220116

REACTIONS (2)
  - Urinary tract obstruction [Recovered/Resolved]
  - Bladder dysfunction [Recovered/Resolved]
